FAERS Safety Report 13805215 (Version 1)
Quarter: 2017Q3

REPORT INFORMATION
  Report Type: Spontaneous
  Country: US (occurrence: US)
  Receive Date: 20170728
  Receipt Date: 20170728
  Transmission Date: 20171127
  Serious: No
  Sender: FDA-Public Use
  Company Number: US-PFIZER INC-2017328181

PATIENT
  Age: 9 Year
  Sex: Male
  Weight: 35 kg

DRUGS (1)
  1. GENOTROPIN [Suspect]
     Active Substance: SOMATROPIN
     Indication: GROWTH HORMONE DEFICIENCY
     Dosage: 1.2 ML, 1X/DAY
     Route: 030
     Dates: start: 20170716

REACTIONS (6)
  - Injection site erythema [Unknown]
  - Crying [Unknown]
  - Injection site pain [Unknown]
  - Product use issue [Unknown]
  - Injection site discomfort [Unknown]
  - Injection site bruising [Recovering/Resolving]

NARRATIVE: CASE EVENT DATE: 20170724
